FAERS Safety Report 13445534 (Version 1)
Quarter: 2017Q2

REPORT INFORMATION
  Report Type: Spontaneous
  Country: US (occurrence: US)
  Receive Date: 20170415
  Receipt Date: 20170415
  Transmission Date: 20170830
  Serious: Yes (Other)
  Sender: FDA-Public Use
  Company Number: US-BION-005828

PATIENT
  Age: 56 Year
  Sex: Female
  Weight: 79.38 kg

DRUGS (3)
  1. DICLOFENAC [Concomitant]
     Active Substance: DICLOFENAC
  2. FISH OIL [Concomitant]
     Active Substance: FISH OIL
  3. ALEVE [Suspect]
     Active Substance: NAPROXEN SODIUM
     Indication: PAIN
     Dosage: 2 MORNING 1 EVENING
     Route: 048
     Dates: start: 2014

REACTIONS (4)
  - Product physical consistency issue [Unknown]
  - Drug prescribing error [Not Recovered/Not Resolved]
  - Haematochezia [Recovered/Resolved]
  - Incorrect dose administered [Not Recovered/Not Resolved]

NARRATIVE: CASE EVENT DATE: 2014
